FAERS Safety Report 24359632 (Version 1)
Quarter: 2024Q3

REPORT INFORMATION
  Report Type: Spontaneous
  Country: US (occurrence: US)
  Receive Date: 20240924
  Receipt Date: 20240924
  Transmission Date: 20241017
  Serious: No
  Sender: NOVARTIS
  Company Number: US-002147023-NVSC2024US190030

PATIENT
  Sex: Male

DRUGS (1)
  1. PLUVICTO [Suspect]
     Active Substance: LUTETIUM LU-177 VIPIVOTIDE TETRAXETAN
     Indication: Prostate cancer
     Dosage: 1000 MBQ (MBQ/ML) (VIAL) (EVERY 6 WEEKS FOR UP TO 6 DOSES)
     Route: 042

REACTIONS (1)
  - Prostatic specific antigen increased [Unknown]
